FAERS Safety Report 5300572-9 (Version None)
Quarter: 2007Q2

REPORT INFORMATION
  Report Type: 
  Country: None (occurrence: None)
  Receive Date: 20070418
  Receipt Date: 20070413
  Transmission Date: 20071010
  Serious: Yes (Hospitalization)
  Sender: FDA-Public Use
  Company Number: US-GLAXOSMITHKLINE-A0647204A

PATIENT
  Sex: Female

DRUGS (13)
  1. COREG [Suspect]
     Indication: DRUG USE FOR UNKNOWN INDICATION
     Dosage: 25MG TWICE PER DAY
     Route: 048
     Dates: start: 20061001, end: 20070101
  2. NOVOLOG [Concomitant]
  3. GLUCOPHAGE [Concomitant]
  4. GLIPIZIDE [Concomitant]
  5. DIGITEK [Concomitant]
  6. CRESTOR [Concomitant]
  7. EFFEXOR [Concomitant]
  8. LOTREL [Concomitant]
  9. AMIODARONE HCL [Concomitant]
  10. DIOVAN HCT [Concomitant]
  11. POTASSIUM CHLORIDE [Concomitant]
  12. KLONOPIN [Concomitant]
  13. UNKNOWN [Concomitant]
     Route: 062

REACTIONS (3)
  - CONSTIPATION [None]
  - DIZZINESS [None]
  - HEART RATE DECREASED [None]
